FAERS Safety Report 21963383 (Version 1)
Quarter: 2023Q1

REPORT INFORMATION
  Report Type: Spontaneous
  Country: US (occurrence: US)
  Receive Date: 20230207
  Receipt Date: 20230207
  Transmission Date: 20230418
  Serious: No
  Sender: FDA-Public Use
  Company Number: US-BRISTOL-MYERS SQUIBB COMPANY-2023-017582

PATIENT
  Age: 87 Year
  Sex: Female

DRUGS (2)
  1. SPRYCEL [Suspect]
     Active Substance: DASATINIB
     Indication: Chronic myeloid leukaemia
     Route: 048
     Dates: start: 20230127
  2. SPRYCEL [Suspect]
     Active Substance: DASATINIB
     Indication: Endometrial cancer stage I

REACTIONS (2)
  - Nausea [Unknown]
  - Diarrhoea [Unknown]
